FAERS Safety Report 11661634 (Version 1)
Quarter: 2015Q4

REPORT INFORMATION
  Report Type: Spontaneous
  Country: US (occurrence: US)
  Receive Date: 20151026
  Receipt Date: 20151026
  Transmission Date: 20160304
  Serious: No
  Sender: FDA-Public Use
  Company Number: US-BAUSCH-BL-2015-017130

PATIENT
  Sex: Female

DRUGS (1)
  1. LORAZEPAM. [Suspect]
     Active Substance: LORAZEPAM
     Indication: PRODUCT USED FOR UNKNOWN INDICATION

REACTIONS (7)
  - Hangover [Unknown]
  - Eye irritation [Unknown]
  - Pruritus [Unknown]
  - Fluid retention [Unknown]
  - Dry mouth [Unknown]
  - Headache [Unknown]
  - Nausea [Unknown]
